FAERS Safety Report 8297518 (Version 3)
Quarter: 2012Q4

REPORT INFORMATION
  Report Type: 
  Country: FR (occurrence: FR)
  Receive Date: 20111218
  Receipt Date: 20121206
  Transmission Date: 20130627
  Serious: Yes (Hospitalization, Other)
  Sender: FDA-Public Use
  Company Number: FR-ELI_LILLY_AND_COMPANY-FR201112001250

PATIENT
  Age: 30 Year
  Sex: Male

DRUGS (6)
  1. ZYPREXA [Suspect]
     Indication: PSYCHOTIC DISORDER
     Dosage: 10 mg, qd
     Route: 048
     Dates: start: 20110727, end: 20110825
  2. CLAFORAN [Concomitant]
     Indication: ANTIBIOTIC THERAPY
     Dosage: 4 g, tid
     Route: 042
     Dates: start: 20110725, end: 20110802
  3. CLAFORAN [Concomitant]
     Dosage: 4 g, tid
     Route: 042
     Dates: start: 20110822, end: 20110825
  4. FOSFOCINE [Concomitant]
     Indication: ANTIBIOTIC THERAPY
     Dosage: 4 g, tid
     Route: 042
     Dates: start: 20110725, end: 20110802
  5. RIFADINE [Concomitant]
     Indication: ANTIBIOTIC THERAPY
     Dosage: 600 mg, bid
     Route: 042
     Dates: start: 20110802, end: 20110822
  6. PIPERACILLINE [Concomitant]
     Indication: ANTIBIOTIC THERAPY
     Dosage: 4 g, tid
     Route: 042
     Dates: start: 20110802, end: 20110822

REACTIONS (2)
  - Drug reaction with eosinophilia and systemic symptoms [Recovered/Resolved]
  - Hypersensitivity [Unknown]
